FAERS Safety Report 14662888 (Version 1)
Quarter: 2018Q1

REPORT INFORMATION
  Report Type: Report from Study
  Country: US (occurrence: US)
  Receive Date: 20180321
  Receipt Date: 20180321
  Transmission Date: 20180509
  Serious: Yes (Other)
  Sender: FDA-Public Use
  Company Number: US-ROCHE-1378811

PATIENT
  Sex: Male
  Weight: 19.1 kg

DRUGS (8)
  1. NUTROPIN AQ [Suspect]
     Active Substance: SOMATROPIN
     Indication: HYPOPITUITARISM
     Route: 058
  2. NUTREN JUNIOR [Concomitant]
     Dosage: 4 CANS
     Route: 065
  3. NUTROPIN AQ [Suspect]
     Active Substance: SOMATROPIN
     Indication: GROWTH HORMONE DEFICIENCY
     Route: 058
     Dates: start: 20130401
  4. POTASSIUM CHLORIDE. [Concomitant]
     Active Substance: POTASSIUM CHLORIDE
     Route: 048
  5. FERROUS SULFATE. [Concomitant]
     Active Substance: FERROUS SULFATE
  6. INSULIN [Concomitant]
     Active Substance: INSULIN NOS
     Dosage: 31G X 5MM MISC
     Route: 065
  7. AMILORIDE [Concomitant]
     Active Substance: AMILORIDE
     Route: 065
  8. MICROZIDE (UNITED STATES) [Concomitant]

REACTIONS (13)
  - Failure to thrive [Unknown]
  - Insulin-like growth factor increased [Unknown]
  - Nuclear magnetic resonance imaging abnormal [Unknown]
  - Ear infection [Recovered/Resolved]
  - Developmental delay [Unknown]
  - Constipation [Unknown]
  - Lung infection [Recovered/Resolved]
  - Pollakiuria [Unknown]
  - Nephrogenic diabetes insipidus [Unknown]
  - Therapeutic response decreased [Unknown]
  - Gastrooesophageal reflux disease [Unknown]
  - Abdominal pain [Unknown]
  - Thirst [Unknown]
